FAERS Safety Report 18390564 (Version 1)
Quarter: 2020Q4

REPORT INFORMATION
  Report Type: Spontaneous
  Country: DE (occurrence: DE)
  Receive Date: 20201015
  Receipt Date: 20201015
  Transmission Date: 20210114
  Serious: Yes (Hospitalization)
  Sender: FDA-Public Use
  Company Number: NVSC2020DE273400

PATIENT
  Age: 85 Year
  Sex: Female

DRUGS (2)
  1. EXJADE [Suspect]
     Active Substance: DEFERASIROX
     Indication: PRODUCT USED FOR UNKNOWN INDICATION
     Dosage: 90 MG, QD
     Route: 048
     Dates: start: 202008
  2. EXJADE [Suspect]
     Active Substance: DEFERASIROX
     Dosage: 1 DF
     Route: 048
     Dates: start: 20201007

REACTIONS (2)
  - Muscle spasms [Unknown]
  - Bacterial infection [Unknown]

NARRATIVE: CASE EVENT DATE: 202009
